FAERS Safety Report 12603382 (Version 1)
Quarter: 2016Q3

REPORT INFORMATION
  Report Type: Spontaneous
  Country: US (occurrence: US)
  Receive Date: 20160728
  Receipt Date: 20160728
  Transmission Date: 20161109
  Serious: Yes (Hospitalization)
  Sender: FDA-Public Use
  Company Number: US-BAYER-2016-144466

PATIENT
  Age: 24 Year
  Sex: Male

DRUGS (1)
  1. CORICIDIN HBP COUGH AND COLD [Suspect]
     Active Substance: CHLORPHENIRAMINE MALEATE\DEXTROMETHORPHAN HYDROBROMIDE
     Indication: DRUG ABUSE
     Dosage: TAKEN NIGHT BEFORE

REACTIONS (15)
  - Blood creatine phosphokinase increased [Recovering/Resolving]
  - Euphoric mood [Recovered/Resolved]
  - Agitation [Recovered/Resolved]
  - Mydriasis [Recovering/Resolving]
  - Mucosal dryness [Recovering/Resolving]
  - Intentional overdose [None]
  - Hypokalaemia [Recovered/Resolved]
  - Drug abuse [None]
  - Sensory level abnormal [Recovered/Resolved]
  - Sinus tachycardia [Recovering/Resolving]
  - Hyperhidrosis [Recovering/Resolving]
  - Hypertensive crisis [Recovering/Resolving]
  - Hallucination [Recovered/Resolved]
  - Acute kidney injury [Recovered/Resolved]
  - Nystagmus [Recovering/Resolving]
